FAERS Safety Report 10798586 (Version 1)
Quarter: 2015Q1

REPORT INFORMATION
  Report Type: Spontaneous
  Country: US (occurrence: US)
  Receive Date: 20150216
  Receipt Date: 20150216
  Transmission Date: 20150721
  Serious: Yes (Hospitalization, Other)
  Sender: FDA-Public Use
  Company Number: US-GLAXOSMITHKLINE-US2015019622

PATIENT
  Sex: Male

DRUGS (3)
  1. VENTOLIN HFA [Suspect]
     Active Substance: ALBUTEROL SULFATE
     Indication: ASTHMA
     Dosage: 1 PUFF(S), PRN
  2. ADVAIR HFA [Concomitant]
     Active Substance: FLUTICASONE PROPIONATE\SALMETEROL XINAFOATE
  3. ALBUTEROL NEBULIZER [Concomitant]
     Active Substance: ALBUTEROL
     Route: 055

REACTIONS (7)
  - Internal fixation of fracture [Unknown]
  - Hand fracture [Recovered/Resolved with Sequelae]
  - Cast application [Not Recovered/Not Resolved]
  - Road traffic accident [Recovering/Resolving]
  - Joint dislocation [Unknown]
  - Knee operation [Unknown]
  - Shoulder operation [Unknown]

NARRATIVE: CASE EVENT DATE: 2001
